FAERS Safety Report 18184155 (Version 2)
Quarter: 2020Q4

REPORT INFORMATION
  Report Type: Other
  Country: US (occurrence: US)
  Receive Date: 20200824
  Receipt Date: 20201023
  Transmission Date: 20210113
  Serious: Yes (Other)
  Sender: FDA-Public Use
  Company Number: US-INTERCEPT-PM2020001693

PATIENT
  Age: 59 Year
  Sex: Female

DRUGS (13)
  1. VENLAFAXINE [Concomitant]
     Active Substance: VENLAFAXINE HYDROCHLORIDE
  2. OCALIVA [Suspect]
     Active Substance: OBETICHOLIC ACID
     Dosage: 10 MG, QD
     Route: 048
  3. URSODEOXYCHOLIC ACID [Concomitant]
     Active Substance: URSODIOL
     Dosage: UNK
  4. COLESEVELAM [Concomitant]
     Active Substance: COLESEVELAM
  5. CREON [Concomitant]
     Active Substance: PANCRELIPASE AMYLASE\PANCRELIPASE LIPASE\PANCRELIPASE PROTEASE
  6. NOVOLOG [Concomitant]
     Active Substance: INSULIN ASPART
  7. GALCANEZUMAB [Concomitant]
     Active Substance: GALCANEZUMAB
  8. OCALIVA [Suspect]
     Active Substance: OBETICHOLIC ACID
     Indication: PRIMARY BILIARY CHOLANGITIS
     Dosage: 5 MG, QD
     Route: 048
     Dates: start: 20180912
  9. AUGMENTIN [Concomitant]
     Active Substance: AMOXICILLIN\CLAVULANATE POTASSIUM
  10. PREMARIN [Concomitant]
     Active Substance: ESTROGENS, CONJUGATED
  11. TOUJEO [Concomitant]
     Active Substance: INSULIN GLARGINE
  12. HYOSCYAMINE. [Concomitant]
     Active Substance: HYOSCYAMINE
  13. LEVOTHYROXINE. [Concomitant]
     Active Substance: LEVOTHYROXINE

REACTIONS (3)
  - Dupuytren^s contracture [Not Recovered/Not Resolved]
  - Complex regional pain syndrome [Unknown]
  - Swelling [Not Recovered/Not Resolved]

NARRATIVE: CASE EVENT DATE: 20200801
